FAERS Safety Report 17808321 (Version 2)
Quarter: 2020Q3

REPORT INFORMATION
  Report Type: Spontaneous
  Country: JP (occurrence: JP)
  Receive Date: 20200520
  Receipt Date: 20200701
  Transmission Date: 20201102
  Serious: Yes (Hospitalization)
  Sender: FDA-Public Use
  Company Number: JP-EISAI MEDICAL RESEARCH-EC-2020-074676

PATIENT
  Age: 79 Year
  Sex: Male

DRUGS (2)
  1. LENVIMA [Suspect]
     Active Substance: LENVATINIB
     Indication: FOLLICULAR THYROID CANCER
     Route: 048
     Dates: start: 20200422, end: 20200424
  2. LENVIMA [Suspect]
     Active Substance: LENVATINIB
     Route: 048
     Dates: start: 20200425, end: 20200508

REACTIONS (5)
  - Ileus [Recovered/Resolved]
  - Decreased appetite [Unknown]
  - Thrombocytopenia [Recovered/Resolved]
  - Abdominal pain upper [Unknown]
  - Hypertension [Unknown]

NARRATIVE: CASE EVENT DATE: 20200424
